FAERS Safety Report 20288712 (Version 2)
Quarter: 2022Q1

REPORT INFORMATION
  Report Type: Spontaneous
  Country: PL (occurrence: PL)
  Receive Date: 20220104
  Receipt Date: 20220228
  Transmission Date: 20220424
  Serious: Yes (Hospitalization, Other)
  Sender: FDA-Public Use
  Company Number: PL-ORPHANEU-2021005505

PATIENT

DRUGS (4)
  1. OSILODROSTAT [Suspect]
     Active Substance: OSILODROSTAT
     Indication: Hyperadrenocorticism
     Dosage: 2 MILLIGRAM, BID
     Dates: start: 20210909, end: 2021
  2. OSILODROSTAT [Suspect]
     Active Substance: OSILODROSTAT
     Dosage: 4 MILLIGRAM, BID
     Dates: start: 2021, end: 2021
  3. OSILODROSTAT [Suspect]
     Active Substance: OSILODROSTAT
     Dosage: 3 MILLIGRAM, BID
     Dates: start: 2021, end: 2021
  4. PASIREOTIDE [Suspect]
     Active Substance: PASIREOTIDE
     Indication: Hyperadrenocorticism

REACTIONS (6)
  - Pancreatitis acute [Recovered/Resolved]
  - Hyperandrogenism [Recovered/Resolved]
  - Laboratory test abnormal [Recovered/Resolved]
  - Computerised tomogram abnormal [Recovered/Resolved]
  - Malaise [Recovered/Resolved]
  - Treatment failure [Recovered/Resolved]

NARRATIVE: CASE EVENT DATE: 20210101
